FAERS Safety Report 10202576 (Version 1)
Quarter: 2014Q2

REPORT INFORMATION
  Report Type: Spontaneous
  Country: DK (occurrence: IT)
  Receive Date: 20140528
  Receipt Date: 20140528
  Transmission Date: 20141212
  Serious: Yes (Other)
  Sender: FDA-Public Use
  Company Number: IT-FRI-1000067655

PATIENT
  Age: 79 Year
  Sex: Male

DRUGS (9)
  1. ESCITALOPRAM [Suspect]
     Dates: start: 20140101, end: 20140430
  2. ESCITALOPRAM [Suspect]
     Dosage: 1/2 TABLET
  3. PERINDOPRIL [Suspect]
     Dosage: 4 MG
     Route: 048
     Dates: start: 20140101, end: 20140430
  4. TACHIDOL [Suspect]
     Dates: start: 20140424, end: 20140430
  5. AMLODIPINE [Concomitant]
     Dosage: 10 MG
     Route: 048
  6. TICLODIPINE [Concomitant]
  7. LASITONE [Concomitant]
     Dates: start: 20140424, end: 20140430
  8. MEGACE [Concomitant]
     Dates: start: 20140424, end: 20140430
  9. CRESTOR [Concomitant]
     Dosage: 10 MG
     Route: 048

REACTIONS (2)
  - Hyponatraemia [Not Recovered/Not Resolved]
  - Sopor [Recovering/Resolving]
